FAERS Safety Report 24181110 (Version 1)
Quarter: 2024Q3

REPORT INFORMATION
  Report Type: Report from Study
  Country: CA (occurrence: CA)
  Receive Date: 20240806
  Receipt Date: 20240806
  Transmission Date: 20241016
  Serious: Yes (Other)
  Sender: JOHNSON AND JOHNSON
  Company Number: CA-JNJFOC-20240754893

PATIENT
  Age: 47 Year
  Sex: Female
  Weight: 151 kg

DRUGS (5)
  1. STELARA [Suspect]
     Active Substance: USTEKINUMAB
     Indication: Colitis ulcerative
     Route: 058
     Dates: start: 20231121
  2. STELARA [Suspect]
     Active Substance: USTEKINUMAB
     Dosage: IV RELOAD
     Route: 040
  3. STELARA [Suspect]
     Active Substance: USTEKINUMAB
     Dosage: ON 30-JUL-2023, THE PATIENT RECEIVED 7TH INFUSION OF USTEKINUMAB AT A DOSE OF 520 MG
     Route: 058
     Dates: start: 20231121
  4. BENADRYL [Suspect]
     Active Substance: DIPHENHYDRAMINE HYDROCHLORIDE
     Indication: Allergy prophylaxis
     Dosage: PRIOR TO INFUSION
     Route: 042
  5. BENADRYL [Suspect]
     Active Substance: DIPHENHYDRAMINE HYDROCHLORIDE
     Dosage: POST INFUSION
     Route: 030

REACTIONS (5)
  - Chest discomfort [Recovered/Resolved]
  - Off label use [Unknown]
  - Drug level decreased [Not Recovered/Not Resolved]
  - Urticaria [Recovering/Resolving]
  - Infusion related reaction [Recovering/Resolving]

NARRATIVE: CASE EVENT DATE: 20240730
